FAERS Safety Report 24921874 (Version 1)
Quarter: 2025Q1

REPORT INFORMATION
  Report Type: Spontaneous
  Country: US (occurrence: None)
  Receive Date: 20250203
  Receipt Date: 20250203
  Transmission Date: 20250408
  Serious: Yes (Death)
  Sender: FDA-CTU
  Company Number: None

PATIENT
  Age: 83 Year
  Sex: Male

DRUGS (8)
  1. PIRFENIDONE [Suspect]
     Active Substance: PIRFENIDONE
     Indication: Idiopathic pulmonary fibrosis
     Dosage: 801MG TID ORAL ?
     Route: 048
     Dates: start: 20211213, end: 20240528
  2. HALOPERIDOL [Concomitant]
     Active Substance: HALOPERIDOL
  3. BISACODYL [Concomitant]
     Active Substance: BISACODYL
  4. SENNOSIDES [Concomitant]
     Active Substance: SENNOSIDES
  5. ATROPINE OPHT DROP [Concomitant]
  6. SURGILUBE TOP GEL [Concomitant]
  7. CALMOSEPTINE TOP OINT [Concomitant]
  8. TYLENOL [Concomitant]
     Active Substance: ACETAMINOPHEN

REACTIONS (5)
  - Bacteraemia [None]
  - Adenocarcinoma of colon [None]
  - Metastases to liver [None]
  - Metastases to bone [None]
  - Metastases to abdominal cavity [None]

NARRATIVE: CASE EVENT DATE: 20240528
